FAERS Safety Report 9822554 (Version 2)
Quarter: 2014Q1

REPORT INFORMATION
  Report Type: Report from Study
  Country: US (occurrence: US)
  Receive Date: 20140116
  Receipt Date: 20140117
  Transmission Date: 20141002
  Serious: Yes (Other)
  Sender: FDA-Public Use
  Company Number: US-ROCHE-1314231

PATIENT
  Age: 61 Year
  Sex: Female

DRUGS (11)
  1. LUCENTIS [Suspect]
     Indication: POLYPOIDAL CHOROIDAL VASCULOPATHY
     Dosage: Q3 FOR 4 MONTH.  OD
     Route: 050
     Dates: end: 20120510
  2. LUCENTIS [Suspect]
     Indication: AGE-RELATED MACULAR DEGENERATION
  3. AVASTIN [Suspect]
     Indication: POLYPOIDAL CHOROIDAL VASCULOPATHY
     Dosage: Q1 FOR 2 MONTH.  DOSE RECEVED 25 MG/ML.  OD
     Route: 050
     Dates: end: 20131010
  4. AVASTIN [Suspect]
     Indication: AGE-RELATED MACULAR DEGENERATION
  5. LIDOCAIN [Concomitant]
  6. BETADINE [Concomitant]
  7. NEO-SYNEPHRINE [Concomitant]
     Route: 065
  8. MYDRIACYL [Concomitant]
     Route: 065
  9. LIDOCAINE, JELLY [Concomitant]
     Indication: ANAESTHESIA
  10. PROPARACAINE [Concomitant]
  11. EYLEA [Concomitant]
     Route: 065
     Dates: start: 20131114

REACTIONS (15)
  - Cystoid macular oedema [Unknown]
  - Off label use [Unknown]
  - Visual impairment [Unknown]
  - Ocular discomfort [Unknown]
  - Flat anterior chamber of eye [Unknown]
  - Polypoidal choroidal vasculopathy [Unknown]
  - Cataract nuclear [Unknown]
  - Retinal disorder [Unknown]
  - Maculopathy [Unknown]
  - Retinal exudates [Unknown]
  - Therapeutic response decreased [Unknown]
  - Off label use [Unknown]
  - Vision blurred [Unknown]
  - Metamorphopsia [Unknown]
  - Drug ineffective [Unknown]
